FAERS Safety Report 7632934-9 (Version None)
Quarter: 2011Q3

REPORT INFORMATION
  Report Type: 
  Country: None (occurrence: None)
  Receive Date: 20110725
  Receipt Date: 20110713
  Transmission Date: 20111222
  Serious: Yes (Other)
  Sender: FDA-Public Use
  Company Number: PHHY2011CN62439

PATIENT
  Age: 52 Year
  Sex: Male

DRUGS (4)
  1. TASIGNA [Suspect]
     Indication: CHRONIC MYELOID LEUKAEMIA
     Dosage: 400 MG, BID
     Route: 048
     Dates: start: 20110423
  2. ANTIHYPERTENSIVE DRUGS [Concomitant]
  3. GLUCOCORTICOIDS [Concomitant]
     Dosage: UNK
  4. TASIGNA [Suspect]
     Dosage: 200 MG, BID
     Route: 048
     Dates: start: 20110509, end: 20110516

REACTIONS (4)
  - WHITE BLOOD CELL COUNT DECREASED [None]
  - RASH GENERALISED [None]
  - PLATELET COUNT DECREASED [None]
  - BLOOD BILIRUBIN INCREASED [None]
